FAERS Safety Report 6912315-3 (Version None)
Quarter: 2010Q3

REPORT INFORMATION
  Report Type: 
  Country: None (occurrence: None)
  Receive Date: 20100806
  Receipt Date: 20080321
  Transmission Date: 20110219
  Serious: No
  Sender: FDA-Public Use
  Company Number: US-PFIZER INC-2008027219

PATIENT
  Age: 66 Year
  Sex: Male

DRUGS (7)
  1. DETROL LA [Suspect]
     Indication: MICTURITION URGENCY
     Dates: start: 20080101, end: 20080301
  2. DILANTIN [Concomitant]
  3. ACETYLSALICYLIC ACID SRT [Concomitant]
  4. UROXATRAL [Concomitant]
  5. LEXAPRO [Concomitant]
  6. PLAVIX [Concomitant]
  7. PROCARDIA [Concomitant]

REACTIONS (1)
  - BLISTER [None]
